FAERS Safety Report 25596840 (Version 1)
Quarter: 2025Q3

REPORT INFORMATION
  Report Type: Spontaneous
  Country: US (occurrence: US)
  Receive Date: 20250723
  Receipt Date: 20250723
  Transmission Date: 20251021
  Serious: No
  Sender: TEVA
  Company Number: US-TEVA-VS-3353272

PATIENT
  Age: 68 Year
  Sex: Female

DRUGS (1)
  1. AUSTEDO XR [Suspect]
     Active Substance: DEUTETRABENAZINE
     Indication: Chorea
     Dosage: TAKE ONE TABLET BY MOUTH ONCE DAILY
     Route: 048

REACTIONS (2)
  - Somnolence [Unknown]
  - Product use in unapproved indication [Unknown]
